FAERS Safety Report 12193506 (Version 4)
Quarter: 2016Q2

REPORT INFORMATION
  Report Type: Spontaneous
  Country: US (occurrence: US)
  Receive Date: 20160320
  Receipt Date: 20160420
  Transmission Date: 20160815
  Serious: Yes (Other)
  Sender: FDA-Public Use
  Company Number: US-MDT-ADR-2016-00534

PATIENT
  Age: 68 Year
  Sex: Female

DRUGS (3)
  1. DILAUDID [Suspect]
     Active Substance: HYDROMORPHONE HYDROCHLORIDE
     Route: 048
  2. BACLOFEN. [Suspect]
     Active Substance: BACLOFEN
     Dosage: 110.4 MCG/DAY
     Route: 037
  3. SUFENTANIL [Suspect]
     Active Substance: SUFENTANIL
     Dosage: 736 MCG/DAY
     Route: 037

REACTIONS (1)
  - Drug withdrawal syndrome [Recovered/Resolved]
